FAERS Safety Report 9121192 (Version 1)
Quarter: 2013Q1

REPORT INFORMATION
  Report Type: Spontaneous
  Country: BH (occurrence: BH)
  Receive Date: 20130225
  Receipt Date: 20130225
  Transmission Date: 20140127
  Serious: Yes (Other)
  Sender: FDA-Public Use
  Company Number: BH-ABBOTT-12P-011-0941344-00

PATIENT
  Age: 28 Year
  Sex: Female
  Weight: 115 kg

DRUGS (4)
  1. HUMIRA [Suspect]
     Indication: PSORIASIS
     Route: 058
     Dates: end: 20120529
  2. ENBREL [Suspect]
     Indication: PRODUCT USED FOR UNKNOWN INDICATION
  3. INFLIXIMAB [Suspect]
     Indication: PSORIASIS
     Route: 042
  4. INFLIXIMAB [Suspect]

REACTIONS (3)
  - Complication of pregnancy [Unknown]
  - Psoriasis [Unknown]
  - Drug effect decreased [Unknown]
